FAERS Safety Report 15812607 (Version 1)
Quarter: 2019Q1

REPORT INFORMATION
  Report Type: Spontaneous
  Country: US (occurrence: US)
  Receive Date: 20190111
  Receipt Date: 20190111
  Transmission Date: 20190417
  Serious: No
  Sender: FDA-Public Use
  Company Number: US-GLAXOSMITHKLINE-US2019000812

PATIENT
  Age: 83 Year
  Sex: Female

DRUGS (1)
  1. VENTOLIN HFA [Suspect]
     Active Substance: ALBUTEROL SULFATE
     Indication: PRODUCT USED FOR UNKNOWN INDICATION
     Dosage: UNK UNK, U
     Route: 055

REACTIONS (6)
  - Cough [Unknown]
  - Malaise [Unknown]
  - Wrong technique in product usage process [Unknown]
  - Product dose omission [Unknown]
  - Product taste abnormal [Unknown]
  - Wheezing [Unknown]

NARRATIVE: CASE EVENT DATE: 201812
